APPROVED DRUG PRODUCT: OXYPHENBUTAZONE
Active Ingredient: OXYPHENBUTAZONE
Strength: 100MG
Dosage Form/Route: TABLET;ORAL
Application: A088399 | Product #001
Applicant: WATSON LABORATORIES INC
Approved: Sep 17, 1984 | RLD: No | RS: No | Type: DISCN